FAERS Safety Report 16758520 (Version 1)
Quarter: 2019Q3

REPORT INFORMATION
  Report Type: Report from Study
  Country: CA (occurrence: CA)
  Receive Date: 20190830
  Receipt Date: 20190830
  Transmission Date: 20191005
  Serious: Yes (Hospitalization)
  Sender: FDA-Public Use
  Company Number: CA-ORION CORPORATION ORION PHARMA-TREX2019-3066

PATIENT
  Age: 68 Year
  Sex: Female
  Weight: 96 kg

DRUGS (7)
  1. HUMIRA [Suspect]
     Active Substance: ADALIMUMAB
     Indication: PSORIASIS
     Route: 058
  2. METHOTREXATE (TRADE NAME UNKNOWN) [Suspect]
     Active Substance: METHOTREXATE
     Indication: PRODUCT USED FOR UNKNOWN INDICATION
     Route: 065
  3. HUMIRA [Suspect]
     Active Substance: ADALIMUMAB
     Dosage: CYCLIC
     Route: 058
  4. CESAMET [Concomitant]
     Active Substance: NABILONE
     Route: 065
  5. DILAUDID [Concomitant]
     Active Substance: HYDROMORPHONE HYDROCHLORIDE
     Indication: PAIN
     Route: 065
  6. HYDROCODONE [Concomitant]
     Active Substance: HYDROCODONE
     Indication: PAIN
     Route: 065
  7. HUMIRA [Suspect]
     Active Substance: ADALIMUMAB
     Route: 058

REACTIONS (7)
  - Breast pain [Recovered/Resolved]
  - Pneumonia [Recovered/Resolved]
  - Cystitis [Recovered/Resolved]
  - Respiratory tract congestion [Recovered/Resolved]
  - Asthma [Recovered/Resolved]
  - Tooth disorder [Recovered/Resolved]
  - Pulmonary mass [Recovered/Resolved]
